FAERS Safety Report 17854763 (Version 1)
Quarter: 2020Q2

REPORT INFORMATION
  Report Type: Spontaneous
  Country: HR (occurrence: HR)
  Receive Date: 20200603
  Receipt Date: 20200603
  Transmission Date: 20200714
  Serious: Yes (Other)
  Sender: FDA-Public Use
  Company Number: HR-PFIZER INC-2020215849

PATIENT
  Age: 30 Year
  Sex: Female

DRUGS (3)
  1. DIAZEPAM. [Suspect]
     Active Substance: DIAZEPAM
     Dosage: 20 MG, 1X/DAY
     Dates: start: 20200110
  2. DOLOPHINE [Suspect]
     Active Substance: METHADONE HYDROCHLORIDE
     Dosage: UNK
     Dates: start: 20200110
  3. LYRICA [Suspect]
     Active Substance: PREGABALIN
     Dosage: 1200 MG, 1X/DAY
     Route: 048
     Dates: start: 20200110, end: 20200110

REACTIONS (2)
  - Suicide attempt [Unknown]
  - Intentional overdose [Unknown]

NARRATIVE: CASE EVENT DATE: 20200110
